FAERS Safety Report 24887769 (Version 2)
Quarter: 2025Q4

REPORT INFORMATION
  Report Type: Spontaneous
  Country: US (occurrence: None)
  Receive Date: 20250127
  Receipt Date: 20251230
  Transmission Date: 20260118
  Serious: No
  Sender: CHIESI
  Company Number: US-CHIESI-2024CHF06487

PATIENT
  Sex: Female

DRUGS (2)
  1. ZYFLO [Suspect]
     Active Substance: ZILEUTON
     Indication: Chronic sinusitis
     Dosage: 1200 MILLIGRAM, BID
     Route: 065
  2. LEFLUNOMIDE [Concomitant]
     Active Substance: LEFLUNOMIDE
     Indication: Product used for unknown indication
     Dosage: UNK
     Route: 065

REACTIONS (3)
  - Off label use [Unknown]
  - Off label use [Unknown]
  - No adverse event [Recovered/Resolved]
